FAERS Safety Report 9521889 (Version 2)
Quarter: 2014Q1

REPORT INFORMATION
  Report Type: Spontaneous
  Country: GB (occurrence: GB)
  Receive Date: 20130913
  Receipt Date: 20140106
  Transmission Date: 20141002
  Serious: Yes (Hospitalization, Other)
  Sender: FDA-Public Use
  Company Number: PHFR2013GB005169

PATIENT
  Age: 46 Year
  Sex: Male

DRUGS (9)
  1. CLOZARIL [Suspect]
     Indication: SCHIZOPHRENIA
     Route: 048
     Dates: start: 20130715
  2. CLOZARIL [Suspect]
     Indication: SCHIZOAFFECTIVE DISORDER
     Dosage: 150 MG,
     Route: 048
     Dates: start: 20130716, end: 20130822
  3. OLANZAPINA [Concomitant]
     Indication: PSYCHOTIC DISORDER
     Dosage: 20 MG, UNK
     Route: 048
     Dates: start: 20130816
  4. SERTRALINE [Concomitant]
     Indication: DEPRESSION
     Dosage: 200 MG, UNK
     Route: 048
     Dates: start: 20131025
  5. SODIUM VALPROATE [Concomitant]
     Indication: AFFECTIVE DISORDER
     Dosage: 2 G, UNK
     Route: 048
     Dates: start: 20130927
  6. LITHIUM CARBONATE [Concomitant]
     Dosage: 800 MG, QD
     Dates: start: 20130701
  7. PIZOTIFEN [Concomitant]
     Dosage: 500 UG, QD
     Dates: start: 20120622
  8. LEVOTHYROXINE [Concomitant]
     Dosage: 50 UG, QD
     Dates: start: 20120625
  9. NEFOPAM [Concomitant]
     Dosage: 30 MG, BID

REACTIONS (3)
  - White blood cell count increased [Recovered/Resolved]
  - Neutrophil count increased [Not Recovered/Not Resolved]
  - Platelet count increased [Unknown]
